FAERS Safety Report 21411106 (Version 1)
Quarter: 2022Q4

REPORT INFORMATION
  Report Type: Spontaneous
  Country: IT (occurrence: None)
  Receive Date: 20221005
  Receipt Date: 20221005
  Transmission Date: 20230113
  Serious: Yes (Other)
  Sender: FDA-Public Use
  Company Number: 2022A330434

PATIENT
  Age: 64 Year
  Sex: Female

DRUGS (6)
  1. QTERN [Interacting]
     Active Substance: DAPAGLIFLOZIN\SAXAGLIPTIN HYDROCHLORIDE
     Route: 065
  2. FASLODEX [Suspect]
     Active Substance: FULVESTRANT
     Route: 065
  3. IBRANCE [Suspect]
     Active Substance: PALBOCICLIB
     Dosage: 125 MG / DAY FOR 21 DAYS FOLLOWED BY A 7-DAY BREAK125.0MG UNKNOWN
     Route: 048
     Dates: start: 20200310
  4. ASPIRIN DL-LYSINE [Interacting]
     Active Substance: ASPIRIN DL-LYSINE
     Dosage: 75.0MG UNKNOWN
     Route: 065
  5. BISOPROLOL FUMARATE [Interacting]
     Active Substance: BISOPROLOL FUMARATE
     Dosage: 1.25MG UNKNOWN
     Route: 065
  6. EZETIMIBE\ROSUVASTATIN CALCIUM [Interacting]
     Active Substance: EZETIMIBE\ROSUVASTATIN CALCIUM
     Dosage: 20.0MG UNKNOWN
     Route: 065

REACTIONS (1)
  - Neutropenia [Recovering/Resolving]

NARRATIVE: CASE EVENT DATE: 20220608
